FAERS Safety Report 5228079-8 (Version None)
Quarter: 2007Q1

REPORT INFORMATION
  Report Type: 
  Country: None (occurrence: None)
  Receive Date: 20061201
  Receipt Date: 20060928
  Transmission Date: 20070707
  Serious: No
  Sender: FDA-Public Use
  Company Number: US200609007404

PATIENT
  Age: 83 Year
  Sex: Female

DRUGS (1)
  1. CYMBALTA [Suspect]
     Indication: NEUROPATHY
     Dosage: 30 MG
     Dates: start: 20060901

REACTIONS (8)
  - ANOREXIA [None]
  - CHEST PAIN [None]
  - DRUG INEFFECTIVE [None]
  - DRY MOUTH [None]
  - DYSPHONIA [None]
  - LETHARGY [None]
  - MALAISE [None]
  - NAUSEA [None]
